FAERS Safety Report 14345402 (Version 2)
Quarter: 2018Q1

REPORT INFORMATION
  Report Type: Report from Study
  Country: US (occurrence: US)
  Receive Date: 20180103
  Receipt Date: 20180216
  Transmission Date: 20180509
  Serious: Yes (Hospitalization)
  Sender: FDA-Public Use
  Company Number: US-ROCHE-2048973

PATIENT
  Age: 65 Year
  Sex: Female
  Weight: 69.8 kg

DRUGS (15)
  1. RANITIDINE. [Concomitant]
     Active Substance: RANITIDINE
  2. ETOPOSIDE. [Suspect]
     Active Substance: ETOPOSIDE
     Indication: RICHTER^S SYNDROME
     Dosage: ON DAYS 1-4
     Route: 042
     Dates: start: 20171017
  3. PREDNISONE. [Suspect]
     Active Substance: PREDNISONE
     Indication: RICHTER^S SYNDROME
     Dosage: ON DAY 1-5
     Route: 048
     Dates: start: 20171017
  4. CEFEPIME [Concomitant]
     Active Substance: CEFEPIME HYDROCHLORIDE
     Indication: UPPER RESPIRATORY TRACT INFECTION
  5. CYCLOPHOSPHAMIDE. [Suspect]
     Active Substance: CYCLOPHOSPHAMIDE
     Indication: RICHTER^S SYNDROME
     Dosage: ON DAY 5
     Route: 042
     Dates: start: 20171017
  6. LEVOFLOXACIN. [Concomitant]
     Active Substance: LEVOFLOXACIN
  7. VENETOCLAX. [Suspect]
     Active Substance: VENETOCLAX
     Indication: RICHTER^S SYNDROME
     Dosage: C2-6?D1-D10?ON 20/DEC/2017, PATIENT RECEIVED LAST DOSE
     Route: 048
     Dates: start: 20171114
  8. VINCRISTINE [Suspect]
     Active Substance: VINCRISTINE
     Indication: RICHTER^S SYNDROME
     Route: 042
     Dates: start: 20171017
  9. NYSTATIN. [Concomitant]
     Active Substance: NYSTATIN
  10. ACYCLOVIR. [Concomitant]
     Active Substance: ACYCLOVIR
  11. RITUXIMAB. [Suspect]
     Active Substance: RITUXIMAB
     Indication: RICHTER^S SYNDROME
     Dosage: C1D1-5?ON 11/DEC/2017, PATIENT RECEIVED LAST DOSE.
     Route: 042
     Dates: start: 20171017
  12. RBC TRANSFUSION [Concomitant]
     Indication: PANCYTOPENIA
  13. BIOTENE MOUTHWASH [Concomitant]
     Active Substance: CETYLPYRIDINIUM CHLORIDE
  14. DOXORUBICIN [Suspect]
     Active Substance: DOXORUBICIN
     Indication: RICHTER^S SYNDROME
     Dosage: ON DAYS 1-4
     Route: 042
     Dates: start: 20171017
  15. LORAZEPAM. [Concomitant]
     Active Substance: LORAZEPAM

REACTIONS (3)
  - Febrile neutropenia [Not Recovered/Not Resolved]
  - Leukopenia [Recovering/Resolving]
  - Thrombocytopenia [Recovering/Resolving]

NARRATIVE: CASE EVENT DATE: 20171223
